FAERS Safety Report 4839833-6 (Version None)
Quarter: 2005Q4

REPORT INFORMATION
  Report Type: 
  Country: None (occurrence: None)
  Receive Date: 20051129
  Receipt Date: 20050711
  Transmission Date: 20060501
  Serious: Yes (Hospitalization)
  Sender: FDA-Public Use
  Company Number: FR-SANOFI-SYNTHELABO-F01200501218

PATIENT
  Sex: Male
  Weight: 89 kg

DRUGS (12)
  1. OXALIPLATIN [Suspect]
     Indication: OESOPHAGEAL CARCINOMA
     Dosage: UNKNOWN
     Route: 042
     Dates: start: 20050606, end: 20050606
  2. FLUOROURACIL [Suspect]
     Indication: OESOPHAGEAL CARCINOMA
     Route: 042
     Dates: start: 20050606, end: 20050607
  3. LEUCOVORIN [Suspect]
     Indication: OESOPHAGEAL CARCINOMA
     Dosage: UNKNOWN
     Route: 042
     Dates: start: 20050606, end: 20050607
  4. RADIOTHERAPY [Concomitant]
     Indication: OESOPHAGEAL CARCINOMA
     Dosage: TOTAL DOSE OF FRACTION ADMINISTERED BEFORE SAE:
     Route: 050
     Dates: start: 20050606, end: 20050606
  5. HUMALOG [Concomitant]
  6. ACTRAPID [Concomitant]
  7. LANTUS [Concomitant]
  8. NEBILOX [Concomitant]
  9. ZOCOR [Concomitant]
  10. ASPEGIC 325 [Concomitant]
  11. ZOPICLONE [Concomitant]
  12. COVERSYL [Concomitant]

REACTIONS (1)
  - DIABETES MELLITUS [None]
